FAERS Safety Report 9917246 (Version 2)
Quarter: 2014Q2

REPORT INFORMATION
  Report Type: Spontaneous
  Country: US (occurrence: US)
  Receive Date: 20140221
  Receipt Date: 20140404
  Transmission Date: 20141212
  Serious: No
  Sender: FDA-Public Use
  Company Number: US-009507513-1402USA010639

PATIENT
  Age: 63 Year
  Sex: Female
  Weight: 68.27 kg

DRUGS (3)
  1. OXYTROL FOR WOMEN [Suspect]
     Indication: POLLAKIURIA
     Dosage: 1 DF, ONCE
     Route: 062
     Dates: start: 20140124, end: 20140126
  2. SIMVASTATIN [Concomitant]
     Indication: BLOOD CHOLESTEROL
     Dosage: UNK, UNKNOWN
  3. LISINOPRIL [Concomitant]
     Indication: HYPERTENSION
     Dosage: UNK, UNKNOWN

REACTIONS (7)
  - Application site irritation [Recovered/Resolved]
  - Application site inflammation [Recovered/Resolved]
  - Skin discolouration [Unknown]
  - Application site pruritus [Recovered/Resolved]
  - Application site erythema [Recovered/Resolved]
  - Application site rash [Recovered/Resolved]
  - Drug ineffective [Unknown]
